FAERS Safety Report 7638011-5 (Version None)
Quarter: 2011Q3

REPORT INFORMATION
  Report Type: 
  Country: None (occurrence: None)
  Receive Date: 20110727
  Receipt Date: 20110706
  Transmission Date: 20111222
  Serious: Yes (Hospitalization, Other)
  Sender: FDA-Public Use
  Company Number: US-BAYER-2011-002847

PATIENT
  Age: 22 Year
  Sex: Female
  Weight: 63.492 kg

DRUGS (13)
  1. MOTRIN [Concomitant]
     Indication: HEADACHE
     Dosage: UNK UNK, PRN
     Dates: start: 20000101
  2. ALBUTEROL SULFATE AUTOHALER [Concomitant]
     Indication: ASTHMA
     Dosage: UNK
     Dates: start: 20040101
  3. ZOFRAN [Concomitant]
     Dosage: UNK
     Dates: start: 20090811
  4. RHOGAM [Concomitant]
     Dosage: UNK
     Dates: start: 20090512
  5. PERCOCET [Concomitant]
     Indication: PAIN MANAGEMENT
  6. SODIUM CHLORIDE [Concomitant]
     Dosage: UNK
     Route: 042
     Dates: start: 20090811
  7. REGLAN [Concomitant]
     Dosage: UNK
     Dates: start: 20090813
  8. PRENATAL VITAMINS [Concomitant]
     Indication: PRENATAL CARE
     Dosage: UNK
     Dates: start: 20080101, end: 20090101
  9. DEPO-PROVERA [Concomitant]
     Dosage: UNK
  10. TYLENOL W/ CODEINE [Concomitant]
     Indication: PAIN MANAGEMENT
     Dosage: UNK
     Dates: start: 20090813
  11. YAZ [Suspect]
     Indication: CONTRACEPTION
     Dosage: UNK
     Route: 048
     Dates: start: 20090201, end: 20090501
  12. YAZ [Suspect]
     Indication: ACNE
  13. MORPHINE [Concomitant]
     Dosage: UNK
     Dates: start: 20100730

REACTIONS (5)
  - CHOLELITHIASIS [None]
  - CHOLECYSTITIS CHRONIC [None]
  - ANXIETY [None]
  - PAIN [None]
  - EMOTIONAL DISTRESS [None]
